FAERS Safety Report 9199692 (Version 1)
Quarter: 2013Q1

REPORT INFORMATION
  Report Type: Spontaneous
  Country: US (occurrence: US)
  Receive Date: 20130329
  Receipt Date: 20130329
  Transmission Date: 20140127
  Serious: Yes (Death)
  Sender: FDA-Public Use
  Company Number: US-PFIZER INC-2013100226

PATIENT
  Age: 56 Year
  Sex: Female

DRUGS (1)
  1. ZYVOX [Suspect]
     Indication: MYCOBACTERIUM AVIUM COMPLEX INFECTION
     Dosage: 600 MG, 2X/DAY (BID)
     Dates: start: 20120327

REACTIONS (1)
  - Lung neoplasm malignant [Fatal]
